FAERS Safety Report 18321902 (Version 1)
Quarter: 2020Q3

REPORT INFORMATION
  Report Type: Spontaneous
  Country: US (occurrence: US)
  Receive Date: 20200928
  Receipt Date: 20200928
  Transmission Date: 20201103
  Serious: No
  Sender: FDA-Public Use
  Company Number: US-BAYER-2020-200381

PATIENT
  Age: 65 Year
  Sex: Female

DRUGS (1)
  1. BETASERON [Suspect]
     Active Substance: INTERFERON BETA-1B
     Indication: MULTIPLE SCLEROSIS
     Dosage: 0.3 MG
     Dates: start: 1996

REACTIONS (10)
  - Fatigue [None]
  - Breast tenderness [None]
  - Injection site reaction [None]
  - Injection site reaction [None]
  - Balance disorder [None]
  - Balance disorder [None]
  - Contusion [None]
  - Contusion [None]
  - Fatigue [None]
  - Breast tenderness [None]

NARRATIVE: CASE EVENT DATE: 202008
